FAERS Safety Report 4768051-5 (Version None)
Quarter: 2005Q3

REPORT INFORMATION
  Report Type: 
  Country: None (occurrence: None)
  Receive Date: 20050913
  Receipt Date: 20050901
  Transmission Date: 20060218
  Serious: Yes (Other)
  Sender: FDA-Public Use
  Company Number: 2005104992

PATIENT
  Age: 44 Year
  Sex: Male
  Weight: 98.4306 kg

DRUGS (2)
  1. ZITHROMAX [Suspect]
     Indication: PNEUMONIA
     Dosage: 250 MG (250 MG, 1 IN 1 D), ORAL
     Route: 048
     Dates: start: 20050715
  2. TYLENOL PM (DIPHENHYDRAMINE, PARACETAMOL) [Suspect]
     Indication: INSOMNIA

REACTIONS (6)
  - ABDOMINAL DISTENSION [None]
  - ANOREXIA [None]
  - INSOMNIA [None]
  - PNEUMOCYSTIS JIROVECI PNEUMONIA [None]
  - SOMNOLENCE [None]
  - WEIGHT DECREASED [None]
